FAERS Safety Report 23476611 (Version 3)
Quarter: 2025Q1

REPORT INFORMATION
  Report Type: Report from Study
  Country: TH (occurrence: TH)
  Receive Date: 20240204
  Receipt Date: 20250213
  Transmission Date: 20250409
  Serious: Yes (Other)
  Sender: EXELIXIS
  Company Number: TH-IPSEN Group, Research and Development-2023-10407

PATIENT
  Age: 80 Year
  Sex: Male

DRUGS (3)
  1. CABOMETYX [Suspect]
     Active Substance: CABOZANTINIB S-MALATE
     Indication: Renal cell carcinoma
     Dosage: 40 MG, 7-10 CONSECUTIVE DAYS WITH 2-3 DAYS OFF
     Route: 048
     Dates: start: 20230511
  2. CABOMETYX [Suspect]
     Active Substance: CABOZANTINIB S-MALATE
     Route: 048
     Dates: end: 202410
  3. CABOMETYX [Suspect]
     Active Substance: CABOZANTINIB S-MALATE
     Dosage: EVERY OTHER DAY
     Route: 048
     Dates: start: 202412

REACTIONS (7)
  - Lung abscess [Unknown]
  - Penile ulceration [Unknown]
  - Tongue ulceration [Unknown]
  - Mouth ulceration [Unknown]
  - Intentional product misuse [Unknown]
  - Off label use [Unknown]
  - Off label use [Unknown]

NARRATIVE: CASE EVENT DATE: 20230511
